FAERS Safety Report 5413708-6 (Version None)
Quarter: 2007Q3

REPORT INFORMATION
  Report Type: 
  Country: None (occurrence: None)
  Receive Date: 20070814
  Receipt Date: 20070810
  Transmission Date: 20080115
  Serious: Yes (Hospitalization)
  Sender: FDA-Public Use
  Company Number: B0477066A

PATIENT
  Age: 30 Year
  Sex: Male

DRUGS (9)
  1. PAXIL [Suspect]
     Indication: DEPRESSION
     Route: 048
     Dates: start: 20070315, end: 20070531
  2. SULPIRIDE [Suspect]
     Indication: DEPRESSION
     Dosage: 50MG SEE DOSAGE TEXT
     Route: 048
     Dates: start: 20070308, end: 20070510
  3. GOODMIN [Concomitant]
     Indication: INSOMNIA
     Dosage: .25MG PER DAY
     Route: 048
     Dates: start: 20070308
  4. DEPAS [Concomitant]
     Indication: ANXIETY
     Dosage: 1MG PER DAY
     Route: 048
     Dates: start: 20070419, end: 20070520
  5. SEPAZON [Concomitant]
     Indication: ANXIETY
     Dosage: 4MG PER DAY
     Route: 048
     Dates: start: 20070521
  6. CHLORPROMAZINE HCL [Concomitant]
     Dosage: 100MG PER DAY
     Route: 048
     Dates: start: 20070523, end: 20070524
  7. HIRNAMIN [Concomitant]
     Indication: INSOMNIA
     Dosage: 100MG PER DAY
     Route: 048
     Dates: start: 20070525
  8. RISPERDAL [Concomitant]
     Indication: IRRITABILITY
     Dosage: 1MG PER DAY
     Route: 048
     Dates: start: 20070523
  9. LITHIUM CARBONATE [Concomitant]
     Dosage: 400MG PER DAY
     Route: 048
     Dates: start: 20070531

REACTIONS (8)
  - ACTIVATION SYNDROME [None]
  - AGGRESSION [None]
  - ANXIETY [None]
  - DIZZINESS [None]
  - HYPERKINESIA [None]
  - INSOMNIA [None]
  - IRRITABILITY [None]
  - MANIA [None]
